FAERS Safety Report 6249623-8 (Version None)
Quarter: 2009Q2

REPORT INFORMATION
  Report Type: 
  Country: None (occurrence: None)
  Receive Date: 20090629
  Receipt Date: 20090617
  Transmission Date: 20091009
  Serious: Yes (Hospitalization)
  Sender: FDA-Public Use
  Company Number: AT-ELI_LILLY_AND_COMPANY-AT200906003944

PATIENT
  Sex: Female

DRUGS (7)
  1. FORTEO [Suspect]
     Indication: OSTEOPOROSIS
     Dosage: 1 D/F, DAILY (1/D)
     Dates: end: 20090413
  2. CALCIUM + VITAMIN D [Concomitant]
  3. MAGNESIUM SULFATE [Concomitant]
  4. SELEN [Concomitant]
  5. ANTIHYPERTENSIVES [Concomitant]
  6. CHOLESTEROL- AND TRIGLYCERIDE REDUCERS [Concomitant]
  7. ANALGESICS [Concomitant]
     Dosage: UNK, EVERY 3 MONTHS
     Dates: start: 20090203

REACTIONS (3)
  - DIZZINESS [None]
  - MENIERE'S DISEASE [None]
  - VOMITING [None]
